FAERS Safety Report 5615356-1 (Version None)
Quarter: 2008Q1

REPORT INFORMATION
  Report Type: 
  Country: None (occurrence: None)
  Receive Date: 20080206
  Receipt Date: 20080123
  Transmission Date: 20080703
  Serious: Yes (Hospitalization, Other)
  Sender: FDA-Public Use
  Company Number: US-AMGEN-STX261984

PATIENT
  Sex: Female

DRUGS (1)
  1. ENBREL [Suspect]
     Indication: PSORIASIS
     Route: 058
     Dates: start: 20040201

REACTIONS (10)
  - ARTERIOVENOUS FISTULA OPERATION [None]
  - BLOOD POTASSIUM INCREASED [None]
  - COMA [None]
  - HAEMOPTYSIS [None]
  - HOSPITALISATION [None]
  - INFECTION [None]
  - KIDNEY INFECTION [None]
  - PERITONEAL DIALYSIS [None]
  - RENAL TRANSPLANT [None]
  - TRANSPLANT FAILURE [None]
